FAERS Safety Report 9245600 (Version 1)
Quarter: 2013Q1

REPORT INFORMATION
  Report Type: Spontaneous
  Country: US (occurrence: None)
  Receive Date: 20121130
  Receipt Date: 20121130
  Transmission Date: 20140127
  Serious: Yes (Other)
  Sender: FDA-Public Use
  Company Number: 346294

PATIENT
  Age: 56 Year
  Sex: Female

DRUGS (1)
  1. NOVOLOG (INSULIN ASPART) SOLUTION FOR INJECTION, 100U/ML [Suspect]
     Indication: DIABETES MELLITUS
     Route: 058

REACTIONS (1)
  - Blood glucose decreased [None]
